FAERS Safety Report 10305683 (Version 1)
Quarter: 2014Q3

REPORT INFORMATION
  Report Type: Spontaneous
  Country: US (occurrence: US)
  Receive Date: 20140715
  Receipt Date: 20140715
  Transmission Date: 20150326
  Serious: No
  Sender: FDA-Public Use
  Company Number: US-GLAXOSMITHKLINE-A1056268A

PATIENT
  Age: 64 Year
  Sex: Female

DRUGS (3)
  1. NICORETTE [Suspect]
     Active Substance: NICOTINE
     Indication: EX-TOBACCO USER
     Dates: start: 20140102, end: 20140106
  2. NICORETTE [Suspect]
     Active Substance: NICOTINE
     Indication: EX-TOBACCO USER
  3. NICORETTE [Suspect]
     Active Substance: NICOTINE
     Route: 002

REACTIONS (4)
  - Adverse drug reaction [Unknown]
  - Dysphonia [Recovered/Resolved]
  - Dyspepsia [Recovered/Resolved]
  - Oropharyngeal pain [Recovered/Resolved]
